FAERS Safety Report 20212268 (Version 2)
Quarter: 2022Q1

REPORT INFORMATION
  Report Type: Spontaneous
  Country: US (occurrence: US)
  Receive Date: 20211221
  Receipt Date: 20220107
  Transmission Date: 20220424
  Serious: Yes (Hospitalization, Other)
  Sender: FDA-Public Use
  Company Number: US-PFIZER INC-202101767507

PATIENT
  Age: 69 Year
  Sex: Female
  Weight: 61.224 kg

DRUGS (2)
  1. PREMARIN [Suspect]
     Active Substance: ESTROGENS, CONJUGATED
     Indication: Bladder prolapse
     Dosage: UNK
     Route: 067
  2. PREMARIN [Suspect]
     Active Substance: ESTROGENS, CONJUGATED
     Dosage: 10 MG, 2X/WEEK
     Route: 067
     Dates: start: 20211006

REACTIONS (2)
  - Bladder prolapse [Not Recovered/Not Resolved]
  - Off label use [Unknown]
